FAERS Safety Report 9405705 (Version 2)
Quarter: 2013Q3

REPORT INFORMATION
  Report Type: Spontaneous
  Country: IN (occurrence: IN)
  Receive Date: 20130717
  Receipt Date: 20130809
  Transmission Date: 20140515
  Serious: No
  Sender: FDA-Public Use
  Company Number: IN-009507513-1307IND004914

PATIENT
  Sex: Male

DRUGS (2)
  1. VIRAFERON [Suspect]
     Dosage: 100 MICROGRAM, ONCE A WEEK
  2. REBETOL [Suspect]
     Route: 048

REACTIONS (4)
  - Pain [Unknown]
  - Asthenia [Unknown]
  - Pyrexia [Unknown]
  - Cough [Unknown]
